FAERS Safety Report 8954734 (Version 1)
Quarter: 2012Q4

REPORT INFORMATION
  Report Type: Report from Study
  Country: AU (occurrence: AU)
  Receive Date: 20121207
  Receipt Date: 20121207
  Transmission Date: 20130627
  Serious: Yes (Life-Threatening, Hospitalization, Congenital Anomaly, Other)
  Sender: FDA-Public Use
  Company Number: AU-ASTRAZENECA-2012SE90990

PATIENT
  Age: 0 Week
  Sex: Male
  Weight: 3.1 kg

DRUGS (8)
  1. QUETIAPINE [Suspect]
     Indication: PSYCHOTIC DISORDER
     Dosage: 50-100 MG/DAY INITIATED PRE-PREGNANCY
     Route: 064
  2. CHLORPROMAZINE [Suspect]
     Indication: PSYCHOTIC DISORDER
     Dosage: 25 MG/DAY INITIATED PRE-PREGNANCY AND STOPPED AT 28/40 WEEKS
     Route: 064
  3. LITHIUM [Suspect]
     Indication: AFFECTIVE DISORDER
     Dosage: 460 MG/DAY INITIATED AT 28/40 WEEKS AND STOPPED BEFORE 24 HRS BEFORE BIRTH
     Route: 064
  4. HALOPERIDOL [Suspect]
     Indication: PSYCHOTIC DISORDER
     Dosage: 0.6-2 MG/DAY INITIATED AT 8/40 WEEKS AND STOPPED AT 12/40 WEEKS
     Route: 064
  5. PROTAPHANE [Concomitant]
     Indication: GESTATIONAL DIABETES
     Dosage: 16 U/DAY IN TOTAL INITIATED AT 18/40 WEEKS AND STOPPED AT BIRTH
     Route: 064
  6. HUMALOG [Concomitant]
     Indication: GESTATIONAL DIABETES
     Dosage: 16 U/DAY IN TOTAL INITIATED AT 18/40 WEEKS AND STOPPED AT BIRTH
     Route: 064
  7. BLACKMORES P+BF [Concomitant]
     Indication: SUPPLEMENTATION THERAPY
     Dosage: 2 TABLETS/DAY INITIATED AT FIRST TRIMESTER AND STOPPED AT BIRTH
     Route: 064
  8. VITAMIN D [Concomitant]
     Indication: VITAMIN SUPPLEMENTATION
     Dosage: 1 TABLET/DAY INITIATED AT FIRST TRIMESTER AND STOPPED AT BIRTH
     Route: 064

REACTIONS (3)
  - Drug withdrawal syndrome neonatal [Recovered/Resolved]
  - Blood glucose decreased [Recovered/Resolved]
  - Cardiac murmur [Not Recovered/Not Resolved]
